FAERS Safety Report 6925846-7 (Version None)
Quarter: 2010Q3

REPORT INFORMATION
  Report Type: 
  Country: None (occurrence: None)
  Receive Date: 20100811
  Receipt Date: 20100804
  Transmission Date: 20110219
  Serious: Yes (Hospitalization)
  Sender: FDA-Public Use
  Company Number: A-CH2010-38766

PATIENT
  Age: 87 Year
  Sex: Female
  Weight: 44 kg

DRUGS (8)
  1. TRACLEER [Suspect]
     Indication: PULMONARY ARTERIAL HYPERTENSION
     Dosage: 62.5 MG, QD, ORAL
     Route: 048
     Dates: start: 20091128, end: 20100511
  2. ALFACALCIDOL (ALFACALCIDOL) [Concomitant]
  3. MENATETRENONE (MENATETRENONE) [Concomitant]
  4. SARPOGRELATE HYDROCHLORIDE (SARPOGRELATE HYDROCHLORIDE) [Concomitant]
  5. REBAMIPIDE (REBAMIPIDE) [Concomitant]
  6. FUROSEMIDE [Concomitant]
  7. MONTELUKAST SODIUM [Concomitant]
  8. RISEDRONATE SODIUM [Concomitant]

REACTIONS (2)
  - CONDITION AGGRAVATED [None]
  - SKIN ULCER [None]
